FAERS Safety Report 6822666-9 (Version None)
Quarter: 2010Q3

REPORT INFORMATION
  Report Type: 
  Country: None (occurrence: None)
  Receive Date: 20100708
  Receipt Date: 20100701
  Transmission Date: 20110219
  Serious: No
  Sender: FDA-Public Use
  Company Number: US-TEVA-236895USA

PATIENT
  Sex: Male

DRUGS (3)
  1. SALBUTAMOL SULFATE INHALATION, 0.09 MG [Suspect]
     Indication: ASTHMA EXERCISE INDUCED
     Route: 055
  2. PSEUDOEPHEDRINE [Concomitant]
  3. LORATADINE [Concomitant]

REACTIONS (1)
  - ANXIETY [None]
